FAERS Safety Report 25993393 (Version 2)
Quarter: 2025Q4

REPORT INFORMATION
  Report Type: Report from Study
  Country: US (occurrence: US)
  Receive Date: 20251104
  Receipt Date: 20251201
  Transmission Date: 20260117
  Serious: Yes (Other)
  Sender: RECORDATI
  Company Number: US-ORPHANEU-2025007790

PATIENT
  Sex: Female
  Weight: 98.866 kg

DRUGS (9)
  1. ISTURISA [Suspect]
     Active Substance: OSILODROSTAT PHOSPHATE
     Indication: Cushing^s syndrome
     Dosage: 2 MG, BID
     Route: 048
     Dates: start: 20250108
  2. CALCIUM CITRATE [Concomitant]
     Active Substance: CALCIUM CITRATE
     Indication: Product used for unknown indication
     Dosage: 950 (200 CA) BID, TABLET 950 (20)
     Route: 048
     Dates: start: 20231020
  3. DOXEPIN HYDROCHLORIDE [Concomitant]
     Active Substance: DOXEPIN HYDROCHLORIDE
     Indication: Product used for unknown indication
     Dosage: 10 MILLIGRAM PER MILLILITRE, QD, CONCENTRATE 10 MILLIGRAM PER MILLILITER
     Route: 048
     Dates: start: 20241122
  4. HYDROCORTISONE [Concomitant]
     Active Substance: HYDROCORTISONE
     Indication: Product used for unknown indication
     Dosage: 5 MG, BID (5 MG TABLET)
     Route: 048
     Dates: start: 20240404
  5. OMEPRAZOLE [Concomitant]
     Active Substance: OMEPRAZOLE
     Indication: Product used for unknown indication
     Dosage: 20 MG, DAILY (DELAYED RELEASE TABLET)
     Route: 048
     Dates: start: 20231020
  6. POTASSIUM CHLORIDE [Concomitant]
     Active Substance: POTASSIUM CHLORIDE
     Indication: Product used for unknown indication
     Dosage: 20 MILLIEQUIVALENT, BID (CRYS ER TABLET)
     Route: 048
     Dates: start: 20231020
  7. OXYCODONE HYDROCHLORIDE [Concomitant]
     Active Substance: OXYCODONE HYDROCHLORIDE
     Indication: Product used for unknown indication
     Dosage: 5 MG, Q6H (TABLET 5 MG)
     Route: 048
     Dates: start: 20231020
  8. SERTRALINE HYDROCHLORIDE [Concomitant]
     Active Substance: SERTRALINE HYDROCHLORIDE
     Indication: Product used for unknown indication
     Dosage: 25 MG, BID (TABLET 25 MG)
     Route: 048
     Dates: start: 20241122
  9. WARFARIN SODIUM [Concomitant]
     Active Substance: WARFARIN SODIUM
     Indication: Product used for unknown indication
     Dosage: 7.5 MG, DAILY (5 MG TABLET)
     Route: 048
     Dates: start: 20231020

REACTIONS (8)
  - Pancreatitis [Unknown]
  - Feeling abnormal [Unknown]
  - Red blood cell count increased [Unknown]
  - White blood cell count increased [Recovering/Resolving]
  - Cortisol increased [Recovering/Resolving]
  - Malaise [Unknown]
  - Asthenia [Unknown]
  - Fatigue [Unknown]

NARRATIVE: CASE EVENT DATE: 20250101
